FAERS Safety Report 17190921 (Version 2)
Quarter: 2020Q1

REPORT INFORMATION
  Report Type: Spontaneous
  Country: US (occurrence: US)
  Receive Date: 20191223
  Receipt Date: 20200106
  Transmission Date: 20200409
  Serious: Yes (Hospitalization, Other)
  Sender: FDA-Public Use
  Company Number: US-PFIZER INC-2019547370

PATIENT
  Age: 25 Year
  Sex: Female
  Weight: 132 kg

DRUGS (1)
  1. BOSULIF [Suspect]
     Active Substance: BOSUTINIB MONOHYDRATE
     Indication: CHRONIC MYELOMONOCYTIC LEUKAEMIA (IN REMISSION)
     Dosage: 500 MG, 1X/DAY
     Route: 048
     Dates: start: 20191205

REACTIONS (11)
  - Constipation [Unknown]
  - Nasopharyngitis [Unknown]
  - Diarrhoea [Unknown]
  - Neuralgia [Unknown]
  - White blood cell count increased [Unknown]
  - Abdominal pain [Unknown]
  - Nausea [Unknown]
  - Decreased appetite [Unknown]
  - Pyrexia [Unknown]
  - Vomiting [Unknown]
  - Fatigue [Unknown]

NARRATIVE: CASE EVENT DATE: 20191216
